FAERS Safety Report 22642281 (Version 1)
Quarter: 2023Q2

REPORT INFORMATION
  Report Type: Spontaneous
  Country: US (occurrence: US)
  Receive Date: 20230626
  Receipt Date: 20230626
  Transmission Date: 20230721
  Serious: Yes (Other)
  Sender: FDA-Public Use
  Company Number: US-ORGANON-O2306USA002696

PATIENT
  Sex: Female

DRUGS (2)
  1. NEXPLANON [Suspect]
     Active Substance: ETONOGESTREL
     Indication: Contraception
     Dosage: 1 IMPLANT,68 MG
     Route: 059
     Dates: end: 202212
  2. CLONAZEPAM [Concomitant]
     Active Substance: CLONAZEPAM
     Dosage: UNK

REACTIONS (6)
  - Pregnancy with implant contraceptive [Not Recovered/Not Resolved]
  - Menopausal symptoms [Unknown]
  - Feeling abnormal [Unknown]
  - Papilloma viral infection [Unknown]
  - Unintended pregnancy [Not Recovered/Not Resolved]
  - Depression [Unknown]

NARRATIVE: CASE EVENT DATE: 20220101
